FAERS Safety Report 12080140 (Version 2)
Quarter: 2016Q1

REPORT INFORMATION
  Report Type: Report from Study
  Country: CA (occurrence: CA)
  Receive Date: 20160216
  Receipt Date: 20160310
  Transmission Date: 20160526
  Serious: Yes (Death, Hospitalization)
  Sender: FDA-Public Use
  Company Number: CA-JNJFOC-20160211758

PATIENT
  Age: 71 Year
  Sex: Male
  Weight: 72.12 kg

DRUGS (3)
  1. METOPROLOL. [Concomitant]
     Active Substance: METOPROLOL
     Dosage: 2 TO 3 TIME DAILY
     Route: 065
  2. NAPROXEN. [Concomitant]
     Active Substance: NAPROXEN
     Dosage: 2 TO 3 TIME DAILY
     Route: 065
  3. SIMPONI [Suspect]
     Active Substance: GOLIMUMAB
     Indication: RHEUMATOID ARTHRITIS
     Route: 058
     Dates: start: 20160114

REACTIONS (2)
  - Death [Fatal]
  - Pneumonia [Unknown]

NARRATIVE: CASE EVENT DATE: 20160204
